FAERS Safety Report 17187167 (Version 5)
Quarter: 2020Q1

REPORT INFORMATION
  Report Type: Spontaneous
  Country: US (occurrence: US)
  Receive Date: 20191220
  Receipt Date: 20200306
  Transmission Date: 20200409
  Serious: No
  Sender: FDA-Public Use
  Company Number: US-ACTELION-A-NJ2019-199229

PATIENT
  Age: 62 Year
  Sex: Female

DRUGS (4)
  1. UPTRAVI [Suspect]
     Active Substance: SELEXIPAG
     Dosage: 600 MCG, BID
     Route: 048
  2. UPTRAVI [Suspect]
     Active Substance: SELEXIPAG
     Dosage: 800 MCG, BID
     Route: 048
     Dates: start: 20191130
  3. UPTRAVI [Suspect]
     Active Substance: SELEXIPAG
     Indication: PULMONARY ARTERIAL HYPERTENSION
     Dosage: 200 MCG, BID
     Route: 048
     Dates: start: 20191122
  4. LETAIRIS [Suspect]
     Active Substance: AMBRISENTAN
     Indication: PRODUCT USED FOR UNKNOWN INDICATION
     Dosage: UNK
     Route: 065
     Dates: start: 201912, end: 20200208

REACTIONS (14)
  - Fatigue [Unknown]
  - Chest discomfort [Unknown]
  - Constipation [Unknown]
  - Poor quality sleep [Unknown]
  - Fear [Unknown]
  - Headache [Unknown]
  - Fluid retention [Unknown]
  - Swelling [Unknown]
  - Pain [Unknown]
  - Nausea [Unknown]
  - Palpitations [Unknown]
  - Nasal congestion [Unknown]
  - Head discomfort [Unknown]
  - Dizziness [Unknown]

NARRATIVE: CASE EVENT DATE: 201912
